FAERS Safety Report 6506838-9 (Version None)
Quarter: 2009Q4

REPORT INFORMATION
  Report Type: 
  Country: None (occurrence: None)
  Receive Date: 20091221
  Receipt Date: 20091216
  Transmission Date: 20100525
  Serious: Yes (Hospitalization)
  Sender: FDA-Public Use
  Company Number: JP-ELI_LILLY_AND_COMPANY-JP200910005670

PATIENT
  Age: 74 Year
  Sex: Female
  Weight: 58 kg

DRUGS (4)
  1. GEMZAR [Suspect]
     Indication: PANCREATIC CARCINOMA STAGE II
     Dosage: 1500 MG, OTHER
     Route: 042
     Dates: start: 20090624, end: 20091007
  2. MUCOSTA [Concomitant]
     Dosage: 3 D/F, DAILY (1/D)
     Route: 048
     Dates: start: 20090518, end: 20090101
  3. THYRADIN [Concomitant]
     Dosage: 25 UG, DAILY (1/D)
     Route: 048
     Dates: start: 20090518, end: 20090101
  4. AMLODIN [Concomitant]
     Dosage: 2.5 MG, DAILY (1/D)
     Route: 048
     Dates: start: 20090518, end: 20090101

REACTIONS (1)
  - LUNG DISORDER [None]
